FAERS Safety Report 19244921 (Version 1)
Quarter: 2021Q2

REPORT INFORMATION
  Report Type: Spontaneous
  Country: ES (occurrence: ES)
  Receive Date: 20210511
  Receipt Date: 20210511
  Transmission Date: 20210717
  Serious: Yes (Other)
  Sender: FDA-Public Use
  Company Number: NVSC2021ES100926

PATIENT
  Age: 55 Year
  Sex: Male

DRUGS (1)
  1. COSENTYX [Suspect]
     Active Substance: SECUKINUMAB
     Indication: PRODUCT USED FOR UNKNOWN INDICATION
     Dosage: 150 G, Q4W
     Route: 058
     Dates: start: 20200925, end: 20210305

REACTIONS (1)
  - Thromboangiitis obliterans [Recovering/Resolving]

NARRATIVE: CASE EVENT DATE: 20210316
